FAERS Safety Report 8780220 (Version 1)
Quarter: 2012Q4

REPORT INFORMATION
  Report Type: Spontaneous
  Country: US (occurrence: None)
  Receive Date: 20120904
  Receipt Date: 20120904
  Transmission Date: 20130627
  Serious: Yes (Hospitalization)
  Sender: FDA-Public Use
  Company Number: None

PATIENT
  Sex: Male
  Weight: 59 kg

DRUGS (6)
  1. BEVACIZUMAB [Suspect]
  2. PEMETREXED [Suspect]
  3. CARBOPLATIN [Suspect]
  4. PACLITAXEL (TAXOL) [Concomitant]
  5. OXYCODONE [Concomitant]
  6. OXYCONTIN [Concomitant]

REACTIONS (1)
  - Device related sepsis [None]
